FAERS Safety Report 23898842 (Version 1)
Quarter: 2024Q2

REPORT INFORMATION
  Report Type: Spontaneous
  Country: CA (occurrence: CA)
  Receive Date: 20240525
  Receipt Date: 20240525
  Transmission Date: 20240716
  Serious: Yes (Other)
  Sender: FDA-Public Use
  Company Number: None

PATIENT
  Age: 42 Year
  Sex: Male

DRUGS (8)
  1. METHOTREXATE [Suspect]
     Active Substance: METHOTREXATE
     Indication: Psoriatic arthropathy
     Route: 065
  2. AMOXICILLIN [Concomitant]
     Active Substance: AMOXICILLIN
     Route: 048
  3. BUPROPION HYDROCHLORIDE [Concomitant]
     Active Substance: BUPROPION HYDROCHLORIDE
     Dosage: 1 EVERY 1 DAYS
     Route: 048
  4. CITALOPRAM [Concomitant]
     Active Substance: CITALOPRAM\CITALOPRAM HYDROBROMIDE
     Dosage: 1 EVERY 1 DAYS
     Route: 048
  5. HUMIRA [Concomitant]
     Active Substance: ADALIMUMAB
  6. NABILONE [Concomitant]
     Active Substance: NABILONE
     Dosage: AS REQUIRED
  7. ROSUVASTATIN [Concomitant]
     Active Substance: ROSUVASTATIN
     Dosage: 1 EVERY 1 DAYS
     Route: 048
  8. ZOPICLONE [Concomitant]
     Active Substance: ZOPICLONE
     Dosage: AS REQUIRED

REACTIONS (5)
  - Decreased appetite [Unknown]
  - Fatigue [Unknown]
  - Lower respiratory tract infection [Unknown]
  - Pain [Unknown]
  - Swelling [Unknown]
